FAERS Safety Report 7537625-0 (Version None)
Quarter: 2011Q2

REPORT INFORMATION
  Report Type: 
  Country: None (occurrence: None)
  Receive Date: 20110603
  Receipt Date: 20110518
  Transmission Date: 20111010
  Serious: Yes (Hospitalization)
  Sender: FDA-Public Use
  Company Number: 2011MA006132

PATIENT
  Age: 29 Year
  Sex: Female

DRUGS (2)
  1. VALPROIC ACID [Concomitant]
  2. CARBAMAZEPINE [Suspect]
     Dosage: 800 MG, OD,

REACTIONS (4)
  - CONFUSIONAL STATE [None]
  - WEIGHT INCREASED [None]
  - PETIT MAL EPILEPSY [None]
  - GRAND MAL CONVULSION [None]
